FAERS Safety Report 14339274 (Version 2)
Quarter: 2020Q3

REPORT INFORMATION
  Report Type: Spontaneous
  Country: LT (occurrence: LT)
  Receive Date: 20171230
  Receipt Date: 20200824
  Transmission Date: 20201102
  Serious: Yes (Life-Threatening, Other)
  Sender: FDA-Public Use
  Company Number: LT-MACLEODS PHARMACEUTICALS US LTD-MAC2017007548

PATIENT

DRUGS (15)
  1. TIANEPTINE [Concomitant]
     Active Substance: TIANEPTINE
     Indication: PAIN MANAGEMENT
  2. PEMETREXED. [Interacting]
     Active Substance: PEMETREXED
     Indication: PLEURAL MESOTHELIOMA
     Dosage: UNK, II CYCLE
     Route: 065
     Dates: start: 201611
  3. ANGIOCELL PLUS [Concomitant]
     Indication: PRODUCT USED FOR UNKNOWN INDICATION
     Dosage: 7.5 MILLILITER
     Route: 048
     Dates: start: 2016
  4. CISPLATIN TEVA [Interacting]
     Active Substance: CISPLATIN
     Indication: PLEURAL MESOTHELIOMA
     Dosage: 150 MG, 0.5MG/ML 100ML ? II CYCLE, 24 HOUR
     Route: 042
     Dates: start: 201611
  5. CYANOCOBALAMIN. [Concomitant]
     Active Substance: CYANOCOBALAMIN
     Indication: PREMEDICATION
     Dosage: 1000 MILLIGRAM
     Route: 065
     Dates: start: 2016
  6. MANNITOL FRESENIUS [Concomitant]
     Indication: TOXICITY TO VARIOUS AGENTS
     Dosage: 1000 ML, QD, 10 PROCEDURE, 24 HOUR
     Route: 042
     Dates: start: 20161121, end: 20161121
  7. ALPRAZOLAM. [Interacting]
     Active Substance: ALPRAZOLAM
     Indication: ANXIETY DISORDER
     Dosage: 0.5 MG, QD, 24 HOUR
     Route: 048
     Dates: start: 2016
  8. APREPITANT. [Interacting]
     Active Substance: APREPITANT
     Indication: PROPHYLAXIS
     Dosage: 125 MG, QD, 24 HOUR
     Route: 048
     Dates: start: 20161121, end: 20161121
  9. FENTANYL. [Interacting]
     Active Substance: FENTANYL
     Indication: PAIN PROPHYLAXIS
     Dosage: 75 ?G, HOURLY
     Route: 062
     Dates: start: 2016
  10. BETALOC ZOK [Concomitant]
     Active Substance: METOPROLOL SUCCINATE
     Indication: HYPERTENSION
     Dosage: 47.5 MG, QD, 24 HOUR
     Route: 048
     Dates: start: 2016
  11. FOLIC ACID. [Concomitant]
     Active Substance: FOLIC ACID
     Indication: PREMEDICATION
     Dosage: 1000 MG, QD, 24 HOUR
     Route: 042
     Dates: start: 2016
  12. TIANEPTINE [Concomitant]
     Active Substance: TIANEPTINE
     Indication: DEPRESSION
     Dosage: 12.5 MG, QD, 24 HOUR
     Route: 048
     Dates: start: 2016
  13. TRAMADOL. [Suspect]
     Active Substance: TRAMADOL
     Indication: PAIN PROPHYLAXIS
     Dosage: 100 MG, QD, 24 HOUR
     Route: 048
     Dates: start: 2016
  14. ONDANSETRON [Interacting]
     Active Substance: ONDANSETRON
     Indication: PROPHYLAXIS
     Dosage: 8 MG, QD, 24 HOUR
     Route: 048
     Dates: start: 20161121, end: 20161121
  15. DEXAMETHASONE. [Concomitant]
     Active Substance: DEXAMETHASONE
     Indication: DRUG TOLERANCE
     Dosage: 4 MG, QD, 24 HOUR
     Route: 048
     Dates: start: 20161120, end: 20161121

REACTIONS (9)
  - Unresponsive to stimuli [Unknown]
  - Hypomagnesaemia [Unknown]
  - Hypersensitivity [Recovered/Resolved]
  - Haemodynamic instability [Recovered/Resolved]
  - Drug interaction [Unknown]
  - Anaphylactic reaction [Recovered/Resolved]
  - Sudden cardiac death [Recovered/Resolved]
  - Cardiotoxicity [Recovered/Resolved]
  - Toxicity to various agents [Unknown]

NARRATIVE: CASE EVENT DATE: 2016
